FAERS Safety Report 7638638-0 (Version None)
Quarter: 2011Q3

REPORT INFORMATION
  Report Type: 
  Country: None (occurrence: None)
  Receive Date: 20110727
  Receipt Date: 20110725
  Transmission Date: 20111222
  Serious: Yes (Other)
  Sender: FDA-Public Use
  Company Number: SE-PFIZER INC-2011168057

PATIENT
  Age: 64 Year
  Sex: Female

DRUGS (4)
  1. XYLOCAINE [Concomitant]
     Dosage: 8 ML, SINGLE
     Dates: start: 20110531
  2. XYLOCAINE [Concomitant]
     Dosage: 8 ML, SINGLE
     Dates: start: 20110524
  3. DEPO-MEDROL [Suspect]
     Indication: PAIN
     Dosage: 2 ML, SINGLE
     Dates: start: 20110524
  4. XYLOCAINE [Concomitant]
     Dosage: 8 ML, SINGLE
     Dates: start: 20110602

REACTIONS (7)
  - HYPOAESTHESIA [None]
  - GAIT DISTURBANCE [None]
  - BURNING SENSATION [None]
  - MUSCLE SPASMS [None]
  - SENSORY LOSS [None]
  - PAIN [None]
  - MUSCLE TWITCHING [None]
